FAERS Safety Report 10877132 (Version 2)
Quarter: 2015Q1

REPORT INFORMATION
  Report Type: Spontaneous
  Country: FR (occurrence: FR)
  Receive Date: 20150302
  Receipt Date: 20150313
  Transmission Date: 20150721
  Serious: Yes (Other)
  Sender: FDA-Public Use
  Company Number: FR-AUROBINDO-AUR-APL-2015-01631

PATIENT
  Age: 65 Year
  Sex: Female

DRUGS (2)
  1. VALPROIC [Suspect]
     Active Substance: VALPROIC ACID
     Indication: EPILEPSY
     Dosage: 1.5 G, DAILY
     Route: 065
  2. VALPROIC [Suspect]
     Active Substance: VALPROIC ACID
     Indication: MYOCLONUS
     Dosage: UNK

REACTIONS (26)
  - Hypertonia [Unknown]
  - Freezing phenomenon [Unknown]
  - Perseveration [Unknown]
  - Attention deficit/hyperactivity disorder [Unknown]
  - Autonomic nervous system imbalance [Unknown]
  - Coordination abnormal [Unknown]
  - Dementia [Unknown]
  - Cerebral hypoperfusion [Unknown]
  - Echolalia [Unknown]
  - Cerebral atrophy [Unknown]
  - Extrapyramidal disorder [Unknown]
  - Status epilepticus [Recovered/Resolved]
  - Orthostatic tremor [Unknown]
  - Tremor [Unknown]
  - Frontotemporal dementia [Unknown]
  - Aphasia [Unknown]
  - Abasia [Unknown]
  - Gait disturbance [Unknown]
  - Akinesia [Unknown]
  - Cognitive disorder [Unknown]
  - Parkinsonian gait [Unknown]
  - Discomfort [Unknown]
  - Arthritis [Unknown]
  - Glaucoma [Unknown]
  - Condition aggravated [Unknown]
  - Abnormal behaviour [Unknown]
